FAERS Safety Report 6415836-5 (Version None)
Quarter: 2009Q4

REPORT INFORMATION
  Report Type: 
  Country: None (occurrence: None)
  Receive Date: 20091023
  Receipt Date: 20091014
  Transmission Date: 20100525
  Serious: Yes (Hospitalization)
  Sender: FDA-Public Use
  Company Number: MSER20090051

PATIENT
  Age: 2 Day
  Sex: Male

DRUGS (3)
  1. MORPHINE SULFATE [Suspect]
     Indication: PAIN
     Dosage: INTRAVENOUS
     Route: 042
  2. MIDAZOLAM (MIDAZOLAM) (MIDAZOLAM) [Concomitant]
  3. SURFACTANT [Concomitant]

REACTIONS (7)
  - ABDOMINAL DISTENSION [None]
  - BLADDER DILATATION [None]
  - BLOOD CREATINE INCREASED [None]
  - HYDRONEPHROSIS [None]
  - PNEUMOTHORAX [None]
  - POLYURIA [None]
  - URINE FLOW DECREASED [None]
